FAERS Safety Report 14282440 (Version 1)
Quarter: 2017Q4

REPORT INFORMATION
  Report Type: Spontaneous
  Country: US (occurrence: US)
  Receive Date: 20171213
  Receipt Date: 20171213
  Transmission Date: 20180321
  Serious: No
  Sender: FDA-Public Use
  Company Number: US-MALLINCKRODT-T201700210

PATIENT
  Sex: Female

DRUGS (3)
  1. FENTANYL TRANSDERMAL SYSTEM [Suspect]
     Active Substance: FENTANYL
     Indication: PAIN
     Dosage: 25 UG/HR, Q72HR
     Route: 062
     Dates: start: 20160919, end: 20161128
  2. FENTANYL TRANSDERMAL SYSTEM [Suspect]
     Active Substance: FENTANYL
     Dosage: 50 UG/HR, Q72HR
     Route: 062
     Dates: start: 20161128
  3. FENTANYL TRANSDERMAL SYSTEM [Suspect]
     Active Substance: FENTANYL
     Indication: PAIN
     Dosage: 12 MCG/HR; Q 72H
     Route: 062
     Dates: start: 20160919, end: 20161128

REACTIONS (7)
  - Wrong technique in product usage process [Not Recovered/Not Resolved]
  - Product physical issue [Not Recovered/Not Resolved]
  - Malaise [Unknown]
  - Inappropriate schedule of drug administration [Unknown]
  - Product packaging quantity issue [Not Recovered/Not Resolved]
  - Rhinorrhoea [Unknown]
  - Drug ineffective [Not Recovered/Not Resolved]

NARRATIVE: CASE EVENT DATE: 20170120
